FAERS Safety Report 12180047 (Version 1)
Quarter: 2016Q1

REPORT INFORMATION
  Report Type: Spontaneous
  Country: TR (occurrence: TR)
  Receive Date: 20160315
  Receipt Date: 20160315
  Transmission Date: 20160526
  Serious: Yes (Hospitalization)
  Sender: FDA-Public Use
  Company Number: TR-MYLANLABS-2016M1011030

PATIENT

DRUGS (3)
  1. PANTOPRAZOLE [Suspect]
     Active Substance: PANTOPRAZOLE SODIUM
     Indication: DYSPEPSIA
     Route: 065
  2. DICLOFENAC [Interacting]
     Active Substance: DICLOFENAC
     Dosage: 2 DOSES OF 50MG
     Route: 065
  3. DICLOFENAC [Interacting]
     Active Substance: DICLOFENAC
     Indication: HEADACHE
     Route: 065

REACTIONS (2)
  - Rhabdomyolysis [Recovered/Resolved]
  - Labelled drug-drug interaction medication error [Recovered/Resolved]
